FAERS Safety Report 9797406 (Version 2)
Quarter: 2014Q1

REPORT INFORMATION
  Report Type: Spontaneous
  Country: JP (occurrence: JP)
  Receive Date: 20140106
  Receipt Date: 20140127
  Transmission Date: 20141002
  Serious: Yes (Other)
  Sender: FDA-Public Use
  Company Number: ALCN2013JP006408

PATIENT
  Age: 79 Year
  Sex: Female

DRUGS (3)
  1. NEVANAC [Suspect]
     Indication: PROPHYLAXIS
     Dosage: 1 GTT, QID
     Route: 047
     Dates: start: 20131126, end: 20131216
  2. VEGAMOX [Suspect]
     Indication: PROPHYLAXIS
     Dosage: 1 GTT, QID
     Route: 047
     Dates: start: 20131126
  3. RINDARON [Concomitant]
     Indication: PROPHYLAXIS
     Dosage: 1 GTT, QID
     Route: 047
     Dates: start: 20131126

REACTIONS (1)
  - Cystoid macular oedema [Recovered/Resolved]
